FAERS Safety Report 6746666-2 (Version None)
Quarter: 2010Q2

REPORT INFORMATION
  Report Type: 
  Country: None (occurrence: None)
  Receive Date: 20100528
  Receipt Date: 20091215
  Transmission Date: 20101027
  Serious: No
  Sender: FDA-Public Use
  Company Number: US-ASTRAZENECA-2009SE31739

PATIENT
  Sex: Female

DRUGS (3)
  1. PRILOSEC OTC [Suspect]
     Dosage: 1 TABLET, 1 /DAY FOR 2 DAYS
     Route: 002
     Dates: start: 20091121, end: 20091122
  2. VITAMIN TAB [Concomitant]
     Dosage: UNKNOWN
  3. MEDICATION FOR ANEMIA [Concomitant]
     Indication: ANAEMIA
     Dosage: UNKNOWN

REACTIONS (2)
  - DYSGEUSIA [None]
  - ERUCTATION [None]
